FAERS Safety Report 9529081 (Version 2)
Quarter: 2013Q3

REPORT INFORMATION
  Report Type: Spontaneous
  Country: US (occurrence: US)
  Receive Date: 20130917
  Receipt Date: 20130919
  Transmission Date: 20140515
  Serious: No
  Sender: FDA-Public Use
  Company Number: US-TEVA-432477USA

PATIENT
  Age: 72 Year
  Sex: Female
  Weight: 81.27 kg

DRUGS (1)
  1. QNASL [Suspect]
     Indication: HYPERSENSITIVITY
     Route: 045
     Dates: start: 20130910, end: 20130911

REACTIONS (7)
  - Lacrimation increased [Recovered/Resolved]
  - Medical device complication [Recovered/Resolved]
  - Eye pain [Not Recovered/Not Resolved]
  - Nasal discomfort [Unknown]
  - Nasal dryness [Unknown]
  - Pruritus [Unknown]
  - Rhinalgia [Unknown]
